FAERS Safety Report 15672879 (Version 3)
Quarter: 2019Q4

REPORT INFORMATION
  Report Type: Report from Study
  Country: US (occurrence: US)
  Receive Date: 20181129
  Receipt Date: 20191230
  Transmission Date: 20200122
  Serious: Yes (Other)
  Sender: FDA-Public Use
  Company Number: US-TESARO, INC-US-2018TSO00631

PATIENT
  Sex: Female

DRUGS (8)
  1. NIRAPARIB CAPSULE [Suspect]
     Active Substance: NIRAPARIB
     Indication: OVARIAN CANCER
     Dosage: 300 MG, QD
     Route: 048
     Dates: start: 20180125
  2. NIRAPARIB CAPSULE [Suspect]
     Active Substance: NIRAPARIB
     Dosage: 300 MG, AT 6:30 WITH EVENING MEAL
     Route: 048
  3. NIRAPARIB CAPSULE [Suspect]
     Active Substance: NIRAPARIB
     Dosage: 300 MG, QD
     Route: 048
  4. NIRAPARIB CAPSULE [Suspect]
     Active Substance: NIRAPARIB
     Dosage: 300 MG, QD
     Route: 048
  5. NIRAPARIB CAPSULE [Suspect]
     Active Substance: NIRAPARIB
     Dosage: 300 MG QPM WITH FOOD
     Route: 048
  6. IRON [Concomitant]
     Active Substance: IRON
     Indication: PRODUCT USED FOR UNKNOWN INDICATION
  7. NIRAPARIB CAPSULE [Suspect]
     Active Substance: NIRAPARIB
     Dosage: 300 MG, QD
     Route: 048
  8. NIRAPARIB CAPSULE [Suspect]
     Active Substance: NIRAPARIB
     Dosage: 300 MG QPM WITH FOOD
     Route: 048

REACTIONS (17)
  - Alopecia [Recovering/Resolving]
  - Insomnia [Not Recovered/Not Resolved]
  - Weight decreased [Recovered/Resolved]
  - White blood cell count decreased [Not Recovered/Not Resolved]
  - Sleep apnoea syndrome [Not Recovered/Not Resolved]
  - Sleep disorder [Not Recovered/Not Resolved]
  - Red blood cell count decreased [Recovered/Resolved]
  - Secretion discharge [Not Recovered/Not Resolved]
  - Dysphonia [Not Recovered/Not Resolved]
  - Sinus congestion [Not Recovered/Not Resolved]
  - Hypertension [Recovered/Resolved]
  - Eastern Cooperative Oncology Group performance status worsened [Unknown]
  - Heart rate increased [Recovered/Resolved]
  - Flushing [Not Recovered/Not Resolved]
  - Dry mouth [Not Recovered/Not Resolved]
  - Anxiety [Unknown]
  - Nausea [Recovered/Resolved]
